FAERS Safety Report 6198429-7 (Version None)
Quarter: 2009Q2

REPORT INFORMATION
  Report Type: 
  Country: None (occurrence: None)
  Receive Date: 20090521
  Receipt Date: 20090518
  Transmission Date: 20091009
  Serious: Yes (Hospitalization)
  Sender: FDA-Public Use
  Company Number: FR-BRISTOL-MYERS SQUIBB COMPANY-14632269

PATIENT
  Age: 60 Year
  Sex: Female

DRUGS (3)
  1. CETUXIMAB [Suspect]
     Indication: COLORECTAL CANCER METASTATIC
     Dosage: 4TH CYCLE 250MG/M2 PER DAY FROM 07MAY09
     Route: 042
     Dates: start: 20090326
  2. PAZOPANIB [Suspect]
     Indication: COLORECTAL CANCER METASTATIC
     Dosage: 1ST CYCLE FROM 27MAR-29APR09;ALSO HAD 4TH CYCLE FROM 07MAY09
     Route: 048
     Dates: start: 20090327
  3. IRINOTECAN HCL [Suspect]
     Indication: COLORECTAL CANCER METASTATIC
     Dosage: 4TH CYCLE 130MG/M2 PER DAY FROM 07MAY09
     Route: 042
     Dates: start: 20090326

REACTIONS (1)
  - HAEMORRHAGE [None]
